FAERS Safety Report 7315101-8 (Version None)
Quarter: 2011Q1

REPORT INFORMATION
  Report Type: 
  Country: None (occurrence: None)
  Receive Date: 20110225
  Receipt Date: 20100510
  Transmission Date: 20110831
  Serious: No
  Sender: FDA-Public Use
  Company Number: US-MYLANLABS-2010S1006435

PATIENT
  Age: 18 Year
  Sex: Female
  Weight: 56.7 kg

DRUGS (2)
  1. CELEXA [Concomitant]
  2. AMNESTEEM [Suspect]
     Indication: ACNE
     Route: 048
     Dates: start: 20100409, end: 20100409

REACTIONS (1)
  - HEADACHE [None]
